FAERS Safety Report 9206986 (Version 3)
Quarter: 2013Q4

REPORT INFORMATION
  Report Type: Spontaneous
  Country: US (occurrence: US)
  Receive Date: 20130403
  Receipt Date: 20131223
  Transmission Date: 20140711
  Serious: Yes (Hospitalization)
  Sender: FDA-Public Use
  Company Number: US-BAYER-2013-040376

PATIENT
  Age: 36 Year
  Sex: Female
  Weight: 77.55 kg

DRUGS (7)
  1. YAZ [Suspect]
     Dosage: UNK
     Dates: start: 2010, end: 2011
  2. YASMIN [Suspect]
     Dosage: UNK
     Dates: start: 2010, end: 2011
  3. OCELLA [Suspect]
     Indication: CONTRACEPTION
     Dosage: UNK
     Dates: start: 2008, end: 201108
  4. OCELLA [Suspect]
     Indication: PREMENSTRUAL SYNDROME
  5. OCELLA [Suspect]
     Indication: PREMENSTRUAL DYSPHORIC DISORDER
  6. SYMPATHOMIMETICS [Concomitant]
     Dosage: 30 MG, UNK
  7. ADVAIR DISKUS [Concomitant]

REACTIONS (13)
  - Pulmonary embolism [None]
  - Pulmonary embolism [None]
  - Deep vein thrombosis [Recovered/Resolved]
  - Vena cava thrombosis [Recovered/Resolved]
  - Pelvic venous thrombosis [Recovered/Resolved]
  - Abdominal pain [None]
  - Emotional distress [None]
  - Anxiety [None]
  - Pain [None]
  - Injury [None]
  - General physical health deterioration [None]
  - Pain [None]
  - Gait disturbance [Recovered/Resolved]
